FAERS Safety Report 11507288 (Version 1)
Quarter: 2015Q3

REPORT INFORMATION
  Report Type: Spontaneous
  Country: US (occurrence: US)
  Receive Date: 20150915
  Receipt Date: 20150915
  Transmission Date: 20151125
  Serious: No
  Sender: FDA-Public Use
  Company Number: US-BANPHARM-20153983

PATIENT
  Age: 60 Year
  Sex: Male
  Weight: 104.33 kg

DRUGS (17)
  1. TEMEZAPAM [Concomitant]
     Indication: SOMNOLENCE
     Dosage: 10 MG,
  2. NEXIUM [Concomitant]
     Active Substance: ESOMEPRAZOLE MAGNESIUM
     Indication: DYSPEPSIA
     Dosage: 20 MG,
  3. ZYRTEC [Suspect]
     Active Substance: CETIRIZINE HYDROCHLORIDE
     Dosage: 1 DF, QD,
     Route: 048
  4. ABILIFY [Concomitant]
     Active Substance: ARIPIPRAZOLE
     Indication: DEPRESSION
     Dosage: 10 MG,
  5. COLACE [Concomitant]
     Active Substance: DOCUSATE SODIUM
     Dosage: 100 MG,
  6. CRESTOR [Concomitant]
     Active Substance: ROSUVASTATIN CALCIUM
     Indication: BLOOD CHOLESTEROL INCREASED
     Dosage: 20 MG,
  7. MARINOL [Concomitant]
     Active Substance: DRONABINOL
     Indication: ANXIETY
     Dosage: 10 MG,
  8. HUMILIN-R U500 [Concomitant]
     Indication: DIABETES MELLITUS
  9. NOVOLOG [Concomitant]
     Active Substance: INSULIN ASPART
     Indication: DIABETES MELLITUS
  10. ATNENOL 60 MG, [Concomitant]
     Indication: HYPERTENSION
  11. GLUCOPHAGE [Concomitant]
     Active Substance: METFORMIN HYDROCHLORIDE
     Indication: DIABETES MELLITUS
     Dosage: 500 MG,
  12. ROPINEROLE [Concomitant]
     Active Substance: ROPINIROLE
     Dosage: 1 MG,
  13. REGLAN [Concomitant]
     Active Substance: METOCLOPRAMIDE HYDROCHLORIDE
     Dosage: 10 MG,
  14. ASPIRIN. [Concomitant]
     Active Substance: ASPIRIN
     Dosage: 81 MG,
  15. BACLOFEN. [Concomitant]
     Active Substance: BACLOFEN
     Dosage: 10 MG,
  16. GABAPETNIN [Concomitant]
     Indication: PAIN
     Dosage: 300 MG,
  17. LAMOTRIGINE. [Concomitant]
     Active Substance: LAMOTRIGINE
     Dosage: 160 MG,

REACTIONS (1)
  - Drug ineffective [Unknown]
